FAERS Safety Report 5633367-7 (Version None)
Quarter: 2008Q1

REPORT INFORMATION
  Report Type: 
  Country: None (occurrence: None)
  Receive Date: 20080219
  Receipt Date: 20080204
  Transmission Date: 20080703
  Serious: Yes (Other)
  Sender: FDA-Public Use
  Company Number: 019241

PATIENT
  Age: 25 Year
  Sex: Female

DRUGS (2)
  1. CLARAVIS [Suspect]
     Dosage: 20MG, QD, ORAL; 20 MG, QD, ORAL
     Route: 048
     Dates: start: 20070515, end: 20070701
  2. CLARAVIS [Suspect]
     Dosage: 20MG, QD, ORAL; 20 MG, QD, ORAL
     Route: 048
     Dates: start: 20070831, end: 20071001

REACTIONS (2)
  - PREGNANCY ON CONTRACEPTIVE [None]
  - UNINTENDED PREGNANCY [None]
